FAERS Safety Report 5557260-3 (Version None)
Quarter: 2007Q4

REPORT INFORMATION
  Report Type: 
  Country: None (occurrence: None)
  Receive Date: 20071214
  Receipt Date: 20071204
  Transmission Date: 20080405
  Serious: Yes (Other)
  Sender: FDA-Public Use
  Company Number: PT-PURDUE-USA_2007_0030633

PATIENT
  Age: 70 Year
  Sex: Male

DRUGS (1)
  1. MORPHINE SULFATE [Suspect]
     Indication: PAIN

REACTIONS (2)
  - INADEQUATE ANALGESIA [None]
  - NEUROTOXICITY [None]
